FAERS Safety Report 7040008-3 (Version None)
Quarter: 2010Q4

REPORT INFORMATION
  Report Type: 
  Country: None (occurrence: None)
  Receive Date: 20101012
  Receipt Date: 20101007
  Transmission Date: 20110411
  Serious: Yes (Hospitalization, Other)
  Sender: FDA-Public Use
  Company Number: DE-AMGEN-QUU443669

PATIENT
  Age: 67 Year
  Sex: Female
  Weight: 57 kg

DRUGS (5)
  1. VECTIBIX [Suspect]
     Indication: COLORECTAL CANCER
     Route: 042
     Dates: start: 20100820, end: 20100916
  2. SPIRIVA [Concomitant]
     Route: 055
  3. SAB SIMPLEX [Concomitant]
     Route: 048
  4. BUDESONIDE [Concomitant]
     Route: 055
  5. FORMOTEROL FUMARATE [Concomitant]
     Route: 055

REACTIONS (3)
  - ASCITES [None]
  - LIVER FUNCTION TEST [None]
  - MALIGNANT NEOPLASM PROGRESSION [None]
